FAERS Safety Report 9764179 (Version 2)
Quarter: 2013Q4

REPORT INFORMATION
  Report Type: Spontaneous
  Country: IT (occurrence: IT)
  Receive Date: 20131216
  Receipt Date: 20131224
  Transmission Date: 20140711
  Serious: Yes (Hospitalization)
  Sender: FDA-Public Use
  Company Number: PHHY2013IT146440

PATIENT
  Sex: Female

DRUGS (2)
  1. VOLTAREN [Suspect]
     Indication: PAIN IN EXTREMITY
     Dosage: 1 DF, QD
     Route: 030
     Dates: start: 20130603, end: 20130605
  2. MUSCORIL [Suspect]
     Indication: PAIN IN EXTREMITY
     Dosage: 1 DF, QD
     Route: 030
     Dates: start: 20130603, end: 20130605

REACTIONS (4)
  - Presyncope [Recovering/Resolving]
  - Diarrhoea haemorrhagic [Recovering/Resolving]
  - Abdominal pain [Recovering/Resolving]
  - Paraesthesia [Recovering/Resolving]
